FAERS Safety Report 7150542-3 (Version None)
Quarter: 2010Q4

REPORT INFORMATION
  Report Type: 
  Country: None (occurrence: None)
  Receive Date: 20101210
  Receipt Date: 20101126
  Transmission Date: 20110411
  Serious: Yes (Other)
  Sender: FDA-Public Use
  Company Number: PHFR2010GB05621

PATIENT
  Sex: Female

DRUGS (1)
  1. CLIMAGEST [Suspect]
     Indication: HORMONE REPLACEMENT THERAPY
     Dosage: 2MG DAILY

REACTIONS (3)
  - AMNESIA [None]
  - MENSTRUATION DELAYED [None]
  - ORAL MUCOSAL EXFOLIATION [None]
